FAERS Safety Report 21996766 (Version 1)
Quarter: 2023Q1

REPORT INFORMATION
  Report Type: Spontaneous
  Country: US (occurrence: US)
  Receive Date: 20230215
  Receipt Date: 20230215
  Transmission Date: 20230418
  Serious: No
  Sender: FDA-Public Use
  Company Number: US-MYLANLABS-2023M1013322

PATIENT
  Sex: Female

DRUGS (4)
  1. ESTRADIOL [Suspect]
     Active Substance: ESTRADIOL
     Indication: Product used for unknown indication
     Dosage: 0.025 MILLIGRAM, QD
     Route: 062
  2. INTRAROSA [Suspect]
     Active Substance: PRASTERONE
     Indication: Vulvitis
     Dosage: 1 DOSAGE FORM, 3XW (1 INSERT AT BEDTIME)
     Route: 067
     Dates: start: 202211
  3. PROGESTERONE [Suspect]
     Active Substance: PROGESTERONE
     Indication: Product used for unknown indication
     Dosage: UNK (EACH NIGHT)
     Route: 065
  4. ESTRADIOL [Suspect]
     Active Substance: ESTRADIOL
     Indication: Product used for unknown indication
     Dosage: UNK (TOPICAL ON EXTERNAL LABIA EACH NIGHT)
     Route: 061

REACTIONS (1)
  - Anxiety [Not Recovered/Not Resolved]
